FAERS Safety Report 12308736 (Version 4)
Quarter: 2016Q2

REPORT INFORMATION
  Report Type: Spontaneous
  Country: NL (occurrence: NL)
  Receive Date: 20160427
  Receipt Date: 20160606
  Transmission Date: 20160815
  Serious: No
  Sender: FDA-Public Use
  Company Number: NL-009507513-1604NLD014871

PATIENT
  Age: 69 Year
  Sex: Male

DRUGS (1)
  1. PEGINTRON [Suspect]
     Active Substance: PEGINTERFERON ALFA-2B
     Dosage: UNK
     Dates: start: 20120112

REACTIONS (3)
  - Product quality issue [Unknown]
  - Underdose [Unknown]
  - Pyrexia [Unknown]

NARRATIVE: CASE EVENT DATE: 20160420
